FAERS Safety Report 5593151-X (Version None)
Quarter: 2008Q1

REPORT INFORMATION
  Report Type: 
  Country: None (occurrence: None)
  Receive Date: 20080114
  Receipt Date: 20080114
  Transmission Date: 20080703
  Serious: No
  Sender: FDA-Public Use
  Company Number: None

PATIENT
  Sex: Female
  Weight: 104.3273 kg

DRUGS (1)
  1. CLINDAMYCIN   300 MG   CAPSRAN   CVS PHARMACY [Suspect]
     Indication: GINGIVAL INFECTION
     Dosage: 1 CAPSULE EVERY 6 HOURS DENTAL
     Route: 004
     Dates: start: 20070108, end: 20070114

REACTIONS (2)
  - ABDOMINAL PAIN UPPER [None]
  - DYSPEPSIA [None]
